FAERS Safety Report 6800554-1 (Version None)
Quarter: 2010Q2

REPORT INFORMATION
  Report Type: 
  Country: None (occurrence: None)
  Receive Date: 20100629
  Receipt Date: 20100617
  Transmission Date: 20101027
  Serious: Yes (Hospitalization)
  Sender: FDA-Public Use
  Company Number: US-SHIRE-ALL1-2010-02991

PATIENT

DRUGS (12)
  1. FOSRENOL [Suspect]
     Indication: HYPERPHOSPHATAEMIA
     Dosage: 500 MG, OTHER (2 - 3 TIMES A DAY WITH MEALS)
     Route: 048
     Dates: start: 20090101
  2. PREDNISOLONE                       /00016202/ [Concomitant]
     Indication: TRANSPLANT
     Dosage: 5 MG, 1X/DAY:QD
     Route: 048
     Dates: start: 20030101
  3. LISINOPRIL [Concomitant]
     Indication: BLOOD PRESSURE INCREASED
     Dosage: 10 MG, 1X/DAY:QD
     Route: 048
     Dates: start: 20090101
  4. METOCLOPRAMIDE [Concomitant]
     Indication: DRUG USE FOR UNKNOWN INDICATION
     Dosage: 5 MG, 1X/DAY:QD
     Route: 048
     Dates: start: 20090101
  5. SYNTHROID [Concomitant]
     Indication: THYROID DISORDER
     Dosage: 112 UG, 1X/DAY:QD
     Route: 048
     Dates: start: 20090101
  6. FEXOFENADINE [Concomitant]
     Indication: DRUG USE FOR UNKNOWN INDICATION
     Dosage: 60 MG, 2X/DAY:BID
     Route: 048
     Dates: start: 20100101
  7. SODIUM BICARBONATE [Concomitant]
     Indication: DRUG USE FOR UNKNOWN INDICATION
     Dosage: 650 MG, 2X/DAY:BID
     Route: 048
     Dates: start: 20090101
  8. RANITIDINE [Concomitant]
     Indication: DRUG USE FOR UNKNOWN INDICATION
     Dosage: 150 MG, 1X/DAY:QD
     Route: 048
     Dates: start: 20090101
  9. SIMVASTATIN [Concomitant]
     Indication: DRUG USE FOR UNKNOWN INDICATION
     Dosage: 10 MG, 1X/DAY:QD
     Route: 048
     Dates: start: 20090101
  10. CALCIUM BICARBONATE [Concomitant]
     Indication: DRUG USE FOR UNKNOWN INDICATION
     Dosage: 650 MG, 2X/DAY:BID
     Route: 048
     Dates: start: 20090101
  11. PREVACID [Concomitant]
     Indication: GASTRIC DISORDER
     Dosage: 30 MG, 1X/DAY:QD
     Route: 048
     Dates: start: 20090101
  12. XENA VITAMIN [Concomitant]
     Indication: FATIGUE
     Dosage: UNK MG, 1X/DAY:QD
     Route: 048
     Dates: start: 20090101

REACTIONS (7)
  - ABDOMINAL PAIN [None]
  - INFECTION [None]
  - MEDICAL DEVICE COMPLICATION [None]
  - NAUSEA [None]
  - OBSTRUCTION GASTRIC [None]
  - VASCULAR GRAFT COMPLICATION [None]
  - VOMITING [None]
